FAERS Safety Report 5067382-1 (Version None)
Quarter: 2006Q3

REPORT INFORMATION
  Report Type: 
  Country: None (occurrence: None)
  Receive Date: 20060714
  Receipt Date: 20060606
  Transmission Date: 20061208
  Serious: No
  Sender: FDA-Public Use
  Company Number: 2006SP002332

PATIENT
  Age: 84 Year
  Sex: Female
  Weight: 78.0187 kg

DRUGS (4)
  1. LUNESTA [Suspect]
     Indication: INITIAL INSOMNIA
     Dosage: 2 MG HS ORAL
     Route: 048
     Dates: start: 20060301, end: 20060101
  2. LUNESTA [Suspect]
     Indication: INITIAL INSOMNIA
     Dosage: 2 MG HS ORAL
     Route: 048
     Dates: start: 20060601
  3. LISINOPRIL [Concomitant]
  4. ADVAIR DISKUS 100/50 [Concomitant]

REACTIONS (2)
  - DRUG INEFFECTIVE [None]
  - INSOMNIA [None]
